FAERS Safety Report 15802709 (Version 1)
Quarter: 2019Q1

REPORT INFORMATION
  Report Type: Spontaneous
  Country: DE (occurrence: DE)
  Receive Date: 20190109
  Receipt Date: 20190109
  Transmission Date: 20190417
  Serious: Yes (Other)
  Sender: FDA-Public Use
  Company Number: DE-ELI_LILLY_AND_COMPANY-DE201901001509

PATIENT
  Age: 66 Year
  Sex: Female

DRUGS (4)
  1. DULOXETINE LILLY 30MG [Suspect]
     Active Substance: DULOXETINE
     Indication: DEPRESSION
     Dosage: 30 MG, BID
     Route: 048
  2. CYMBALTA [Suspect]
     Active Substance: DULOXETINE HYDROCHLORIDE
     Indication: ANXIETY DISORDER
  3. DULOXETINE LILLY 30MG [Suspect]
     Active Substance: DULOXETINE
     Indication: ANXIETY DISORDER
  4. CYMBALTA [Suspect]
     Active Substance: DULOXETINE HYDROCHLORIDE
     Indication: DEPRESSION
     Dosage: UNK UNK, UNKNOWN
     Route: 065
     Dates: start: 2006

REACTIONS (7)
  - Thyroid neoplasm [Not Recovered/Not Resolved]
  - Malignant dysphagia [Not Recovered/Not Resolved]
  - Hypophagia [Unknown]
  - Depressed mood [Not Recovered/Not Resolved]
  - Anxiety [Not Recovered/Not Resolved]
  - Abdominal discomfort [Not Recovered/Not Resolved]
  - Vomiting [Not Recovered/Not Resolved]
